FAERS Safety Report 9164469 (Version 5)
Quarter: 2014Q3

REPORT INFORMATION
  Report Type: Spontaneous
  Country: US (occurrence: US)
  Receive Date: 20130315
  Receipt Date: 20140725
  Transmission Date: 20150326
  Serious: Yes (Hospitalization, Other)
  Sender: FDA-Public Use
  Company Number: US-BAYER-2013-028242

PATIENT
  Age: 20 Year
  Sex: Female
  Weight: 61.22 kg

DRUGS (1)
  1. MIRENA [Suspect]
     Active Substance: LEVONORGESTREL
     Indication: CONTRACEPTION
     Dosage: 20 MCG/24HR, CONT
     Route: 015
     Dates: start: 20070222, end: 20070912

REACTIONS (11)
  - Pain [None]
  - Injury [None]
  - Emotional distress [None]
  - Depression [None]
  - Colon injury [None]
  - Uterine perforation [None]
  - Device difficult to use [None]
  - Vaginal haemorrhage [None]
  - Anxiety [None]
  - Muscle spasms [None]
  - Abdominal pain upper [None]

NARRATIVE: CASE EVENT DATE: 200706
